FAERS Safety Report 5468649-5 (Version None)
Quarter: 2007Q3

REPORT INFORMATION
  Report Type: 
  Country: None (occurrence: None)
  Receive Date: 20070926
  Receipt Date: 20070919
  Transmission Date: 20080115
  Serious: Yes (Other)
  Sender: FDA-Public Use
  Company Number: B0488561A

PATIENT
  Age: 34 Year
  Sex: Female

DRUGS (1)
  1. PANADOL [Suspect]
     Indication: DRUG USE FOR UNKNOWN INDICATION
     Dosage: 500MG PER DAY
     Route: 048

REACTIONS (4)
  - LOSS OF CONSCIOUSNESS [None]
  - PRURITUS [None]
  - RASH [None]
  - VISION BLURRED [None]
